FAERS Safety Report 25179964 (Version 3)
Quarter: 2025Q3

REPORT INFORMATION
  Report Type: Spontaneous
  Country: EU (occurrence: EU)
  Receive Date: 20250409
  Receipt Date: 20250709
  Transmission Date: 20251020
  Serious: Yes (Other)
  Sender: BRISTOL-MYERS SQUIBB COMPANY
  Company Number: EU-BRISTOL-MYERS SQUIBB COMPANY-2025-046269

PATIENT
  Age: 67 Year
  Sex: Female

DRUGS (4)
  1. NIVOLUMAB [Suspect]
     Active Substance: NIVOLUMAB
     Indication: Non-small cell lung cancer
     Dates: start: 20230620
  2. NELVUTAMIG [Suspect]
     Active Substance: NELVUTAMIG
     Indication: Non-small cell lung cancer
     Dates: start: 20230620
  3. PEMETREXED [Concomitant]
     Active Substance: PEMETREXED
     Indication: Non-small cell lung cancer
  4. CARBOPLATIN [Concomitant]
     Active Substance: CARBOPLATIN
     Indication: Non-small cell lung cancer

REACTIONS (14)
  - General physical health deterioration [Unknown]
  - Gastrointestinal motility disorder [Unknown]
  - Altered state of consciousness [Unknown]
  - C-reactive protein increased [Unknown]
  - Procalcitonin abnormal [Unknown]
  - Urinary sediment present [Unknown]
  - Ascites [Unknown]
  - Fat tissue increased [Unknown]
  - Tubulointerstitial nephritis [Recovering/Resolving]
  - Acute kidney injury [Recovering/Resolving]
  - Peritonitis [Recovering/Resolving]
  - Hypothyroidism [Recovering/Resolving]
  - Pneumonia bacterial [Recovering/Resolving]
  - Nephropathy toxic [Unknown]
